FAERS Safety Report 24347746 (Version 3)
Quarter: 2025Q1

REPORT INFORMATION
  Report Type: Spontaneous
  Country: US (occurrence: US)
  Receive Date: 20240922
  Receipt Date: 20250116
  Transmission Date: 20250409
  Serious: No
  Sender: SANOFI AVENTIS
  Company Number: US-SA-2024SA272242

PATIENT
  Sex: Male
  Weight: 90 kg

DRUGS (10)
  1. DUPIXENT [Suspect]
     Active Substance: DUPILUMAB
     Indication: Dermatitis atopic
     Dosage: 300 MG, QOW
     Route: 058
  2. CLOBETASOL PROPIONATE [Concomitant]
     Active Substance: CLOBETASOL PROPIONATE
  3. COLCHICINE [Concomitant]
     Active Substance: COLCHICINE
  4. TAMSULOSIN HYDROCHLORIDE [Concomitant]
     Active Substance: TAMSULOSIN HYDROCHLORIDE
  5. TRIAMCINOLONE ACETONIDE [Concomitant]
     Active Substance: TRIAMCINOLONE ACETONIDE
  6. ALLOPURINOL [Concomitant]
     Active Substance: ALLOPURINOL
  7. GABAPENTIN [Concomitant]
     Active Substance: GABAPENTIN
  8. VITAMIN D3 [Concomitant]
     Active Substance: CHOLECALCIFEROL
  9. CALCIUM [Concomitant]
     Active Substance: CALCIUM
  10. VITAMIN C [Concomitant]
     Active Substance: ASCORBIC ACID

REACTIONS (4)
  - Psoriasis [Unknown]
  - Eye infection [Recovered/Resolved]
  - Eczema [Unknown]
  - Therapeutic response decreased [Unknown]
